FAERS Safety Report 8250082-4 (Version None)
Quarter: 2012Q2

REPORT INFORMATION
  Report Type: 
  Country: None (occurrence: None)
  Receive Date: 20120402
  Receipt Date: 20120327
  Transmission Date: 20120825
  Serious: Yes (Death)
  Sender: FDA-Public Use
  Company Number: TW-ROXANE LABORATORIES, INC.-2012-RO-00902RO

PATIENT
  Age: 36 Year
  Sex: Female

DRUGS (16)
  1. LORAZEPAM [Suspect]
     Dosage: 1 MG
  2. LORAZEPAM [Suspect]
     Dosage: 10 MG
  3. FLUOXETINE [Suspect]
     Dosage: 20 MG
  4. ESTAZOLAM [Suspect]
     Dosage: 20 MG
  5. MIDAZOLAM [Suspect]
     Dosage: 7.5 MG
  6. FLUOXETINE [Suspect]
     Dosage: 200 MG
  7. ESTAZOLAM [Suspect]
     Dosage: 2 MG
  8. MIDAZOLAM [Suspect]
     Dosage: 75 MG
  9. BROMAZEPAM [Suspect]
     Dosage: 60 MG
  10. ALPRAZOLAM [Suspect]
     Dosage: 1.5 MG
  11. MOCLOBEMIDE [Suspect]
     Dosage: 4500 MG
  12. PROPRANOLOL [Suspect]
     Dosage: 30 MG
  13. PROPRANOLOL [Suspect]
     Dosage: 300 MG
  14. MOCLOBEMIDE [Suspect]
     Dosage: 450 MG
  15. ALPRAZOLAM [Suspect]
     Dosage: 15 MG
  16. BROMAZEPAM [Suspect]
     Dosage: 6 MG

REACTIONS (18)
  - THROMBOCYTOPENIA [None]
  - BLOOD CREATININE INCREASED [None]
  - DISSEMINATED INTRAVASCULAR COAGULATION [None]
  - SHIFT TO THE LEFT [None]
  - SEROTONIN SYNDROME [None]
  - VENTRICULAR ARRHYTHMIA [None]
  - MULTIPLE DRUG OVERDOSE INTENTIONAL [None]
  - ELECTROCARDIOGRAM QT PROLONGED [None]
  - BLOOD PRESSURE DECREASED [None]
  - BLOOD GLUCOSE INCREASED [None]
  - ANTIDEPRESSANT DRUG LEVEL BELOW THERAPEUTIC [None]
  - ELECTROCARDIOGRAM QRS COMPLEX PROLONGED [None]
  - RENAL FAILURE [None]
  - SINUS TACHYCARDIA [None]
  - CIRCULATORY COLLAPSE [None]
  - COMA [None]
  - BRADYCARDIA [None]
  - RESPIRATORY FAILURE [None]
